FAERS Safety Report 7103100-0 (Version None)
Quarter: 2010Q4

REPORT INFORMATION
  Report Type: 
  Country: None (occurrence: None)
  Receive Date: 20101108
  Receipt Date: 20101027
  Transmission Date: 20110411
  Serious: Yes (Other)
  Sender: FDA-Public Use
  Company Number: AXC-2010-000277

PATIENT
  Sex: Female

DRUGS (3)
  1. MESALAMINE [Suspect]
     Indication: RECTAL ULCER
  2. LAXATIVES () UNKNOWN [Suspect]
     Indication: RECTAL ULCER
  3. HYDROCORTISONE ACETATE [Suspect]
     Indication: RECTAL ULCER

REACTIONS (5)
  - DISEASE PROGRESSION [None]
  - PELVIC FLOOR DYSSYNERGIA [None]
  - RECTAL LESION [None]
  - RECTAL POLYP [None]
  - RECTAL ULCER [None]
